FAERS Safety Report 26165880 (Version 2)
Quarter: 2025Q4

REPORT INFORMATION
  Report Type: Spontaneous
  Country: US (occurrence: US)
  Receive Date: 20251216
  Receipt Date: 20251226
  Transmission Date: 20260118
  Serious: Yes (Hospitalization, Other)
  Sender: ARDELYX
  Company Number: US-ARDELYX-2025ARDX009107

PATIENT
  Sex: Male

DRUGS (1)
  1. XPHOZAH [Suspect]
     Active Substance: TENAPANOR HYDROCHLORIDE
     Indication: Hyperphosphataemia
     Dosage: UNK
     Route: 065
     Dates: start: 202511

REACTIONS (4)
  - Device related infection [Unknown]
  - Medical device site abscess [Unknown]
  - Product use issue [Unknown]
  - Therapy interrupted [Unknown]
